FAERS Safety Report 13857390 (Version 1)
Quarter: 2017Q3

REPORT INFORMATION
  Report Type: Report from Study
  Country: AU (occurrence: AU)
  Receive Date: 20170810
  Receipt Date: 20170810
  Transmission Date: 20171127
  Serious: Yes (Other)
  Sender: FDA-Public Use
  Company Number: AU-REGENERON PHARMACEUTICALS, INC.-2017-20137

PATIENT

DRUGS (1)
  1. EYLEA [Suspect]
     Active Substance: AFLIBERCEPT
     Indication: NEOVASCULAR AGE-RELATED MACULAR DEGENERATION
     Route: 031

REACTIONS (5)
  - Treatment noncompliance [Unknown]
  - Inability to afford medication [Unknown]
  - Inappropriate schedule of drug administration [Unknown]
  - Visual impairment [Unknown]
  - Eye infection [Unknown]
